FAERS Safety Report 9931860 (Version 1)
Quarter: 2014Q1

REPORT INFORMATION
  Report Type: Spontaneous
  Country: US (occurrence: None)
  Receive Date: 20140227
  Receipt Date: 20140227
  Transmission Date: 20141002
  Serious: Yes (Other)
  Sender: FDA-Public Use
  Company Number: None

PATIENT
  Sex: 0

DRUGS (1)
  1. BACITRACIN [Suspect]
     Indication: EYE INFECTION
     Route: 031

REACTIONS (5)
  - Headache [None]
  - Dizziness [None]
  - Ocular hyperaemia [None]
  - Eye swelling [None]
  - Eye pain [None]
